FAERS Safety Report 26043025 (Version 1)
Quarter: 2025Q4

REPORT INFORMATION
  Report Type: Spontaneous
  Country: PR (occurrence: PR)
  Receive Date: 20251113
  Receipt Date: 20251113
  Transmission Date: 20260117
  Serious: No
  Sender: ANI
  Company Number: PR-ANIPHARMA-2025-PR-000103

PATIENT
  Age: 50 Year
  Sex: Female

DRUGS (1)
  1. CORTICOTROPIN [Suspect]
     Active Substance: CORTICOTROPIN
     Indication: Multiple sclerosis relapse
     Dosage: SQ DAILY
     Route: 058
     Dates: start: 20251005, end: 20251010

REACTIONS (4)
  - Blood pressure increased [Recovering/Resolving]
  - Swelling [Recovered/Resolved]
  - Contraindicated product administered [Recovered/Resolved]
  - Swelling face [Recovered/Resolved]

NARRATIVE: CASE EVENT DATE: 20251005
